FAERS Safety Report 5643742-2 (Version None)
Quarter: 2008Q1

REPORT INFORMATION
  Report Type: 
  Country: None (occurrence: None)
  Receive Date: 20080131
  Receipt Date: 20071015
  Transmission Date: 20080703
  Serious: Yes (Hospitalization)
  Sender: FDA-Public Use
  Company Number: 163-21880-07100886

PATIENT
  Age: 47 Year
  Sex: Female

DRUGS (3)
  1. REVLIMID [Suspect]
     Indication: MULTIPLE MYELOMA
     Dosage: 10 MG, DAILY, ORAL
     Route: 048
     Dates: start: 20060920
  2. PENICILLIN [Concomitant]
  3. CIPRO [Concomitant]

REACTIONS (4)
  - DIARRHOEA [None]
  - NAUSEA [None]
  - PAIN IN EXTREMITY [None]
  - VOMITING [None]
